FAERS Safety Report 4416033-5 (Version None)
Quarter: 2004Q3

REPORT INFORMATION
  Report Type: 
  Country: None (occurrence: None)
  Receive Date: 20040804
  Receipt Date: 20040804
  Transmission Date: 20050211
  Serious: Yes (Hospitalization)
  Sender: FDA-Public Use
  Company Number: None

PATIENT
  Age: 84 Year
  Sex: Female
  Weight: 77 kg

DRUGS (1)
  1. FUROSEMIDE [Suspect]
     Indication: OEDEMA
     Dosage: PO DAILY
     Route: 048
     Dates: start: 20031201, end: 20040701

REACTIONS (4)
  - BLISTER [None]
  - DERMATITIS BULLOUS [None]
  - ERYTHEMA [None]
  - OEDEMA PERIPHERAL [None]
